FAERS Safety Report 6556274-4 (Version None)
Quarter: 2010Q1

REPORT INFORMATION
  Report Type: 
  Country: None (occurrence: None)
  Receive Date: 20100128
  Receipt Date: 20090925
  Transmission Date: 20100710
  Serious: No
  Sender: FDA-Public Use
  Company Number: US-TEVA-210639USA

PATIENT
  Sex: Male
  Weight: 88.53 kg

DRUGS (2)
  1. COPAXONE [Suspect]
     Indication: MULTIPLE SCLEROSIS
     Route: 058
     Dates: start: 20090925
  2. VYTORIN [Concomitant]

REACTIONS (2)
  - INJECTION SITE VESICLES [None]
  - MUSCLE TWITCHING [None]
